FAERS Safety Report 17976734 (Version 1)
Quarter: 2020Q3

REPORT INFORMATION
  Report Type: Spontaneous
  Country: US (occurrence: US)
  Receive Date: 20200703
  Receipt Date: 20200703
  Transmission Date: 20201103
  Serious: No
  Sender: FDA-Public Use
  Company Number: US-009507513-2007USA001018

PATIENT
  Age: 21 Year
  Sex: Female
  Weight: 54.42 kg

DRUGS (1)
  1. NEXPLANON [Suspect]
     Active Substance: ETONOGESTREL
     Indication: CONTRACEPTION
     Dosage: 1 LEFT ARM IMPLANT (ROD), UPTO 3 YEARS
     Route: 059
     Dates: start: 20170112

REACTIONS (6)
  - Diarrhoea [Unknown]
  - Menorrhagia [Unknown]
  - Secretion discharge [Unknown]
  - Sneezing [Unknown]
  - Headache [Unknown]
  - Incorrect product administration duration [Unknown]

NARRATIVE: CASE EVENT DATE: 20200113
